FAERS Safety Report 8485088-3 (Version None)
Quarter: 2012Q3

REPORT INFORMATION
  Report Type: 
  Country: None (occurrence: None)
  Receive Date: 20120703
  Receipt Date: 20120621
  Transmission Date: 20120928
  Serious: Yes (Other)
  Sender: FDA-Public Use
  Company Number: JP-VERTEX PHARMACEUTICALS INC.-AE-2012-008318

PATIENT
  Age: 65 Year
  Sex: Male

DRUGS (25)
  1. PANCREAZE [Concomitant]
     Route: 048
  2. FAMOTIDINE [Concomitant]
     Route: 048
     Dates: start: 20120417, end: 20120508
  3. PANCREAZE [Concomitant]
     Route: 048
  4. PEGINTERFERON ALFA-2B [Concomitant]
     Indication: HEPATITIS C
     Route: 051
     Dates: start: 20120214
  5. GLUFAST [Concomitant]
     Route: 048
  6. MAGNESIUM OXIDE [Concomitant]
     Route: 048
  7. LEVOFLOXACIN [Concomitant]
     Route: 048
     Dates: start: 20120501, end: 20120503
  8. TELAVIC (TELAPREVIR) [Suspect]
     Route: 048
     Dates: start: 20120417, end: 20120505
  9. REBETOL [Concomitant]
     Route: 048
     Dates: start: 20120411, end: 20120424
  10. GLUCOBAY [Concomitant]
     Route: 048
  11. MAGNESIUM OXIDE [Concomitant]
     Route: 048
  12. LAC-B [Concomitant]
     Route: 048
  13. LANSOPRAZOLE [Concomitant]
     Route: 048
  14. JANUVIA [Concomitant]
     Route: 048
  15. TELAVIC (TELAPREVIR) [Suspect]
     Indication: HEPATITIS C
     Route: 048
     Dates: start: 20120214, end: 20120416
  16. REBETOL [Concomitant]
     Indication: HEPATITIS C
     Route: 048
     Dates: start: 20120214, end: 20120410
  17. REBETOL [Concomitant]
     Route: 048
     Dates: start: 20120425
  18. DILTIAZEM HCL [Concomitant]
     Route: 048
  19. LANTUS INJ SOLOSTAR [Concomitant]
     Route: 058
  20. MAGNESIUM HYDROXIDE TAB [Concomitant]
     Route: 048
  21. ASPIRIN [Concomitant]
     Route: 048
     Dates: end: 20120101
  22. LAC-B [Concomitant]
     Route: 048
  23. MAGNESIUM HYDROXIDE TAB [Concomitant]
     Route: 048
  24. LANSOPRAZOLE [Concomitant]
     Route: 048
  25. ISODINE GARGLE [Concomitant]
     Route: 049
     Dates: start: 20120501, end: 20120507

REACTIONS (3)
  - HAEMOGLOBIN DECREASED [None]
  - PLATELET COUNT DECREASED [None]
  - RASH [None]
